FAERS Safety Report 21498853 (Version 1)
Quarter: 2022Q4

REPORT INFORMATION
  Report Type: Spontaneous
  Country: US (occurrence: None)
  Receive Date: 20221021
  Receipt Date: 20221021
  Transmission Date: 20230112
  Serious: No
  Sender: FDA-Public Use
  Company Number: None

PATIENT
  Age: 49 Year
  Sex: Female

DRUGS (1)
  1. MAVYRET [Suspect]
     Active Substance: GLECAPREVIR\PIBRENTASVIR
     Indication: Hepatitis C
     Dosage: DAILY ORAL?
     Route: 048

REACTIONS (4)
  - Hypersensitivity [None]
  - Pruritus [None]
  - Pruritus [None]
  - Scratch [None]

NARRATIVE: CASE EVENT DATE: 20221019
